FAERS Safety Report 8852011 (Version 1)
Quarter: 2012Q4

REPORT INFORMATION
  Report Type: Spontaneous
  Country: BR (occurrence: None)
  Receive Date: 20121017
  Receipt Date: 20121017
  Transmission Date: 20130627
  Serious: Yes (Hospitalization)
  Sender: FDA-Public Use
  Company Number: IMP_06019_2012

PATIENT
  Sex: Male

DRUGS (1)
  1. RILUZOLE (RILUZOLE) [Suspect]
     Indication: PRODUCT USED FOR UNKNOWN INDICATION
     Dosage: (DF Transplacental)
     Route: 064

REACTIONS (3)
  - Maternal drugs affecting foetus [None]
  - Small for dates baby [None]
  - Patent ductus arteriosus [None]
